FAERS Safety Report 17039779 (Version 1)
Quarter: 2019Q4

REPORT INFORMATION
  Report Type: Report from Study
  Country: US (occurrence: US)
  Receive Date: 20191116
  Receipt Date: 20191116
  Transmission Date: 20200122
  Serious: Yes (Hospitalization)
  Sender: FDA-Public Use
  Company Number: NVSC2019US012217

PATIENT
  Sex: Female
  Weight: 53 kg

DRUGS (4)
  1. TRAMETINIB [Suspect]
     Active Substance: TRAMETINIB
     Dosage: 2 MG (DAYS 1-14)
     Route: 048
     Dates: start: 20190924
  2. NAVITOCLAX [Suspect]
     Active Substance: NAVITOCLAX
     Dosage: 250 MG (DAYS 8-28)
     Route: 048
     Dates: start: 20190924
  3. TRAMETINIB [Suspect]
     Active Substance: TRAMETINIB
     Indication: PANCREATIC CARCINOMA
     Dosage: 2 MG (DAYS 1-14)
     Route: 048
     Dates: start: 20190916
  4. NAVITOCLAX [Suspect]
     Active Substance: NAVITOCLAX
     Indication: PANCREATIC CARCINOMA
     Dosage: 150 MG (DAYS 1-7)
     Route: 048
     Dates: start: 20190916

REACTIONS (1)
  - Pain [Recovering/Resolving]

NARRATIVE: CASE EVENT DATE: 20190924
